FAERS Safety Report 15539249 (Version 5)
Quarter: 2023Q2

REPORT INFORMATION
  Report Type: Report from Study
  Country: FR (occurrence: FR)
  Receive Date: 20181022
  Receipt Date: 20230519
  Transmission Date: 20230722
  Serious: Yes (Hospitalization, Other)
  Sender: FDA-Public Use
  Company Number: FR-BIOVITRUM-2017BV000382

PATIENT
  Age: 51 Year
  Sex: Male
  Weight: 49 kg

DRUGS (6)
  1. EFMOROCTOCOG ALFA [Suspect]
     Active Substance: EFMOROCTOCOG ALFA
     Indication: Factor VIII deficiency
     Dosage: 2000 IU, PRN (41 IU/KG INJECTION ON DEMAND)
     Route: 042
     Dates: start: 20170906, end: 20171017
  2. TRIUMEQ [Concomitant]
     Active Substance: ABACAVIR SULFATE\DOLUTEGRAVIR SODIUM\LAMIVUDINE
     Indication: HIV infection
     Dosage: UNK
     Route: 048
  3. TRAMADOL HYDROCHLORIDE [Concomitant]
     Active Substance: TRAMADOL HYDROCHLORIDE
     Indication: Pain
     Dosage: 500 MG
     Route: 048
  4. RENUTRYL [Concomitant]
     Indication: Nutritional supplementation
     Dosage: UNK
     Route: 048
  5. EPTACOG ALFA [Concomitant]
     Active Substance: COAGULATION FACTOR VIIA RECOMBINANT HUMAN
     Dosage: 5 MG
  6. EMICIZUMAB [Concomitant]
     Active Substance: EMICIZUMAB
     Dosage: 81 MG

REACTIONS (3)
  - Factor VIII inhibition [Recovered/Resolved]
  - Haematuria [Recovered/Resolved]
  - Drug ineffective [Recovered/Resolved]

NARRATIVE: CASE EVENT DATE: 20171018
